FAERS Safety Report 5899300-8 (Version None)
Quarter: 2008Q3

REPORT INFORMATION
  Report Type: 
  Country: None (occurrence: None)
  Receive Date: 20080828
  Receipt Date: 20080508
  Transmission Date: 20090109
  Serious: Yes (Other)
  Sender: FDA-Public Use
  Company Number: CIP08000852

PATIENT
  Age: 46 Year
  Sex: Male
  Weight: 78.5 kg

DRUGS (6)
  1. ASACOL [Suspect]
     Indication: COLITIS ULCERATIVE
     Dosage: 1200 MG 3 TIMES DAILY, ORAL ; OFF AND ON, ORAL
     Route: 048
     Dates: start: 20050330, end: 20070517
  2. ASACOL [Suspect]
     Indication: COLITIS ULCERATIVE
     Dosage: 1200 MG 3 TIMES DAILY, ORAL ; OFF AND ON, ORAL
     Route: 048
     Dates: start: 20070517, end: 20080313
  3. DONNATAL (PHENOBARBITAL, HYOSCYAMINE SULFATE, HYOSCINE HYDROBROMIDE, A [Concomitant]
  4. LOMOTIL /00034001/ (DIPHENOXYLATE HYDROCHLORIDE, ATROPINE SULFATE) [Concomitant]
  5. ENBREL [Concomitant]
  6. NSAID'S [Concomitant]

REACTIONS (5)
  - BLOOD CREATININE INCREASED [None]
  - BLOOD UREA INCREASED [None]
  - NEPHRITIS INTERSTITIAL [None]
  - RENAL ATROPHY [None]
  - RENAL FAILURE [None]
